FAERS Safety Report 21891748 (Version 1)
Quarter: 2023Q1

REPORT INFORMATION
  Report Type: Spontaneous
  Country: US (occurrence: US)
  Receive Date: 20230120
  Receipt Date: 20230120
  Transmission Date: 20230418
  Serious: Yes (Other)
  Sender: FDA-Public Use
  Company Number: US-BRISTOL-MYERS SQUIBB COMPANY-2023-007520

PATIENT
  Age: 52 Year
  Sex: Female

DRUGS (1)
  1. NIVOLUMAB [Suspect]
     Active Substance: NIVOLUMAB
     Indication: Diffuse large B-cell lymphoma

REACTIONS (5)
  - Pneumonitis [Recovered/Resolved]
  - Rash [Recovered/Resolved]
  - Immune-mediated enterocolitis [Unknown]
  - Cardiomyopathy [Recovered/Resolved]
  - Off label use [Unknown]
